FAERS Safety Report 8617759 (Version 3)
Quarter: 2013Q2

REPORT INFORMATION
  Report Type: Spontaneous
  Country: US (occurrence: US)
  Receive Date: 20120615
  Receipt Date: 20130424
  Transmission Date: 20140414
  Serious: Yes (Other)
  Sender: FDA-Public Use
  Company Number: US-ASTRAZENECA-2012SE37730

PATIENT
  Age: 80 Year
  Sex: Female

DRUGS (2)
  1. NEXIUM [Suspect]
     Route: 048
  2. OTHER MEDICATIONS [Suspect]
     Route: 065

REACTIONS (6)
  - Foot fracture [Unknown]
  - Accident [Unknown]
  - Gastrooesophageal reflux disease [Unknown]
  - Eating disorder [Unknown]
  - Abdominal pain upper [Unknown]
  - Drug dose omission [Unknown]
